FAERS Safety Report 10726127 (Version 1)
Quarter: 2015Q1

REPORT INFORMATION
  Report Type: Spontaneous
  Country: TR (occurrence: None)
  Receive Date: 20150116
  Receipt Date: 20150116
  Transmission Date: 20150721
  Serious: Yes (Hospitalization, Other)
  Sender: FDA-Public Use
  Company Number: TR-ZYDUS-006398

PATIENT
  Age: 21 Year
  Sex: Female

DRUGS (2)
  1. PROPRANOLOL [Suspect]
     Active Substance: PROPRANOLOL\PROPRANOLOL HYDROCHLORIDE
  2. FERROGLYCINE SULFATE [Suspect]
     Active Substance: FERROGLYCINE SULFATE

REACTIONS (7)
  - Sinus bradycardia [None]
  - Intentional overdose [None]
  - Cardiogenic shock [None]
  - Toxicity to various agents [None]
  - Anuria [None]
  - Drug ineffective [None]
  - Suicide attempt [None]
